FAERS Safety Report 7988261-3 (Version None)
Quarter: 2011Q4

REPORT INFORMATION
  Report Type: 
  Country: None (occurrence: None)
  Receive Date: 20111216
  Receipt Date: 20110621
  Transmission Date: 20120403
  Serious: No
  Sender: FDA-Public Use
  Company Number: US-ABBOTT-11P-163-0734049-00

PATIENT
  Sex: Female

DRUGS (1)
  1. PROMETRIUM [Suspect]
     Indication: POSTMENOPAUSAL HAEMORRHAGE
     Dosage: 100 MG DAILY
     Dates: start: 20110501

REACTIONS (1)
  - DIARRHOEA [None]
